FAERS Safety Report 13124420 (Version 1)
Quarter: 2017Q1

REPORT INFORMATION
  Report Type: Spontaneous
  Country: US (occurrence: US)
  Receive Date: 20170118
  Receipt Date: 20170118
  Transmission Date: 20170428
  Serious: Yes (Hospitalization)
  Sender: FDA-Public Use
  Company Number: US-PROCTER+GAMBLE-GS17002603

PATIENT
  Sex: Male

DRUGS (1)
  1. VICKS VAPORUB [Suspect]
     Active Substance: CAMPHOR (SYNTHETIC)\EUCALYPTUS OIL\MENTHOL
     Indication: ASTHMA
     Dosage: 1 APPLIC, 1 ONLY
     Route: 061

REACTIONS (3)
  - Drug administered to patient of inappropriate age [Unknown]
  - Dyspnoea [Unknown]
  - Product use issue [Unknown]
